FAERS Safety Report 21370074 (Version 1)
Quarter: 2022Q3

REPORT INFORMATION
  Report Type: Spontaneous
  Country: FR (occurrence: FR)
  Receive Date: 20220923
  Receipt Date: 20220923
  Transmission Date: 20221027
  Serious: Yes (Hospitalization)
  Sender: FDA-Public Use
  Company Number: None

PATIENT
  Age: 96 Year
  Sex: Female
  Weight: 54.9 kg

DRUGS (9)
  1. PAXLOVID [Suspect]
     Active Substance: NIRMATRELVIR\RITONAVIR
     Indication: COVID-19
     Dosage: 3 TABLETS (2 PF-07321332 + 1 RITONAVIR) IN THE MORNING AND IN THE EVENING
     Route: 048
     Dates: start: 20220831, end: 20220903
  2. AUGMENTIN [Suspect]
     Active Substance: AMOXICILLIN\CLAVULANATE POTASSIUM
     Indication: Sepsis
     Dosage: 1 G/125 MG EVERY 8 H
     Route: 048
     Dates: start: 20220830, end: 20220902
  3. AUGMENTIN [Suspect]
     Active Substance: AMOXICILLIN\CLAVULANATE POTASSIUM
     Dosage: 1 G/200 MG EVERY 8H
     Route: 042
     Dates: start: 20220828, end: 20220829
  4. RAMIPRIL [Concomitant]
     Active Substance: RAMIPRIL
     Indication: Hypertension
     Dosage: 1 DF, SINGLE
     Route: 048
     Dates: start: 20220823
  5. OXYCONTIN [Concomitant]
     Active Substance: OXYCODONE HYDROCHLORIDE
     Indication: Pain
     Dosage: 2 DF, SINGLE (MORNING AND EVENING)
     Route: 048
     Dates: start: 20220830
  6. ACETAMINOPHEN [Concomitant]
     Active Substance: ACETAMINOPHEN
     Indication: Pain
     Dosage: 2 DF EVERY 8 HOURS
     Route: 048
     Dates: start: 20220824
  7. ELIQUIS [Concomitant]
     Active Substance: APIXABAN
     Dosage: 1-0-1
     Route: 048
     Dates: start: 20220823, end: 20220908
  8. TRANSIPEG [MACROGOL 3350] [Concomitant]
     Indication: Constipation
     Dosage: 1 DF, SINGLE (2-1-0)
     Route: 048
     Dates: start: 20220826, end: 20220909
  9. POTASSIUM CHLORIDE [Concomitant]
     Active Substance: POTASSIUM CHLORIDE
     Dosage: 6 DF (2-2-2)
     Route: 048
     Dates: start: 20220902

REACTIONS (1)
  - Rash erythematous [Recovering/Resolving]

NARRATIVE: CASE EVENT DATE: 20220903
